FAERS Safety Report 16533986 (Version 6)
Quarter: 2020Q2

REPORT INFORMATION
  Report Type: Spontaneous
  Country: JP (occurrence: JP)
  Receive Date: 20190704
  Receipt Date: 20200507
  Transmission Date: 20200713
  Serious: Yes (Hospitalization, Other)
  Sender: FDA-Public Use
  Company Number: JP-009507513-1906JPN002919J

PATIENT
  Age: 57 Year
  Sex: Male
  Weight: 88 kg

DRUGS (2)
  1. KEYTRUDA [Suspect]
     Active Substance: PEMBROLIZUMAB
     Indication: NON-SMALL CELL LUNG CANCER
     Dosage: 200 MILLIGRAM, Q3W
     Route: 041
  2. KEYTRUDA [Suspect]
     Active Substance: PEMBROLIZUMAB
     Indication: METASTASES TO BONE
     Dosage: 200 MILLIGRAM, Q3W
     Route: 041

REACTIONS (3)
  - Renal impairment [Recovered/Resolved]
  - Silent thyroiditis [Recovered/Resolved]
  - Immune-mediated hypothyroidism [Recovered/Resolved]
